FAERS Safety Report 23420579 (Version 1)
Quarter: 2024Q1

REPORT INFORMATION
  Report Type: Spontaneous
  Country: CA (occurrence: CA)
  Receive Date: 20240119
  Receipt Date: 20240119
  Transmission Date: 20240409
  Serious: Yes (Other)
  Sender: FDA-Public Use
  Company Number: CA-PADAGIS-2024PAD00048

PATIENT

DRUGS (7)
  1. CYCLOSPORINE [Suspect]
     Active Substance: CYCLOSPORINE
     Indication: Still^s disease
     Dosage: FROM 17 UNTILL 5 MONTHS PRE-HSCT
     Route: 065
  2. METHOTREXATE [Suspect]
     Active Substance: METHOTREXATE
     Indication: Still^s disease
     Dosage: FROM DIAGNOSIS UNTIL 5 MONTHS PRE-HSCT
     Route: 065
  3. TOCILIZUMAB [Suspect]
     Active Substance: TOCILIZUMAB
     Indication: Still^s disease
     Dosage: FROM 22 UNTIL 19 MONTHS PRE-HSCT
     Route: 065
  4. TOCILIZUMAB [Suspect]
     Active Substance: TOCILIZUMAB
     Dosage: FROM 14 UNTIL 5 MONTHS PRE-HSCT
     Route: 065
  5. CANAKINUMAB [Suspect]
     Active Substance: CANAKINUMAB
     Indication: Still^s disease
     Dosage: FROM 19 UNTIL 14 MONTHS PRE-HSCT
     Route: 065
  6. ANAKINRA [Suspect]
     Active Substance: ANAKINRA
     Indication: Still^s disease
     Dosage: FROM 5 UNTILL 2 MONTHS PRE-HSCT
     Route: 065
  7. TOFACITINIB [Suspect]
     Active Substance: TOFACITINIB
     Indication: Still^s disease
     Dosage: FROM 5 UNTIL 1 MONTH PRE-HSCT
     Route: 065

REACTIONS (10)
  - Osteoporotic fracture [Unknown]
  - Hypertensive cardiomyopathy [None]
  - Spinal cord compression [None]
  - Drug ineffective for unapproved indication [Unknown]
  - Cushingoid [None]
  - Short stature [None]
  - Obstructive sleep apnoea syndrome [None]
  - Epidural lipomatosis [Unknown]
  - Spinal stenosis [None]
  - Hepatic steatosis [None]
